FAERS Safety Report 14166452 (Version 1)
Quarter: 2017Q4

REPORT INFORMATION
  Report Type: Spontaneous
  Country: US (occurrence: US)
  Receive Date: 20171107
  Receipt Date: 20171107
  Transmission Date: 20180321
  Serious: No
  Sender: FDA-Public Use
  Company Number: US-BEH-2017084967

PATIENT
  Sex: Male
  Weight: 136.5 kg

DRUGS (33)
  1. AZELASTINE. [Concomitant]
     Active Substance: AZELASTINE HYDROCHLORIDE
     Route: 065
  2. FUROSEMIDE. [Concomitant]
     Active Substance: FUROSEMIDE
     Route: 065
  3. SPIRIVA [Concomitant]
     Active Substance: TIOTROPIUM BROMIDE MONOHYDRATE
     Route: 065
  4. OXCARBAZEPINE. [Concomitant]
     Active Substance: OXCARBAZEPINE
     Route: 065
  5. MELATONIN [Concomitant]
     Active Substance: MELATONIN
     Route: 065
  6. ARIPIPRAZOLE. [Concomitant]
     Active Substance: ARIPIPRAZOLE
     Route: 065
  7. EPINEPHRINE. [Concomitant]
     Active Substance: EPINEPHRINE
     Route: 065
  8. LMX                                /00033401/ [Concomitant]
     Route: 065
  9. NEURONTIN [Concomitant]
     Active Substance: GABAPENTIN
     Route: 065
  10. HIZENTRA [Suspect]
     Active Substance: HUMAN IMMUNOGLOBULIN G
     Dosage: UNK
     Route: 058
  11. HIZENTRA [Suspect]
     Active Substance: HUMAN IMMUNOGLOBULIN G
     Dosage: 7 G, QW
     Route: 058
     Dates: start: 20171013
  12. METFORMIN [Concomitant]
     Active Substance: METFORMIN HYDROCHLORIDE
     Route: 065
  13. DIPHENHYDRAMINE. [Concomitant]
     Active Substance: DIPHENHYDRAMINE
     Route: 065
  14. DIAZEPAM. [Concomitant]
     Active Substance: DIAZEPAM
     Route: 065
  15. ORITAVANCIN. [Concomitant]
     Active Substance: ORITAVANCIN
     Route: 065
  16. DIFLUCAN [Concomitant]
     Active Substance: FLUCONAZOLE
     Route: 065
  17. SPIRONOLACTONE. [Concomitant]
     Active Substance: SPIRONOLACTONE
     Route: 065
  18. XOPENEX [Concomitant]
     Active Substance: LEVALBUTEROL HYDROCHLORIDE
     Route: 065
  19. TAMSULOSIN [Concomitant]
     Active Substance: TAMSULOSIN
     Route: 065
  20. HIZENTRA [Suspect]
     Active Substance: HUMAN IMMUNOGLOBULIN G
     Dosage: 5 G, QW
     Route: 058
  21. ELIQUIS [Concomitant]
     Active Substance: APIXABAN
     Route: 065
  22. CLOPIDOGREL [Concomitant]
     Active Substance: CLOPIDOGREL BISULFATE
     Route: 065
  23. PROMETHAZINE [Concomitant]
     Active Substance: PROMETHAZINE\PROMETHAZINE HYDROCHLORIDE
     Route: 065
  24. ROPINIROLE. [Concomitant]
     Active Substance: ROPINIROLE
     Route: 065
  25. ADVAIR HFA [Concomitant]
     Active Substance: FLUTICASONE PROPIONATE\SALMETEROL XINAFOATE
     Route: 065
  26. HIZENTRA [Suspect]
     Active Substance: HUMAN IMMUNOGLOBULIN G
     Indication: IMMUNODEFICIENCY COMMON VARIABLE
     Dosage: UNK
     Route: 058
  27. HIZENTRA [Suspect]
     Active Substance: HUMAN IMMUNOGLOBULIN G
     Dosage: UNK
     Route: 058
  28. CARVEDILOL. [Concomitant]
     Active Substance: CARVEDILOL
     Route: 065
  29. FINASTERIDE. [Concomitant]
     Active Substance: FINASTERIDE
     Route: 065
  30. ACETAMINOPHEN. [Concomitant]
     Active Substance: ACETAMINOPHEN
     Route: 065
  31. MUPIROCIN. [Concomitant]
     Active Substance: MUPIROCIN
     Route: 065
  32. HYDROXYZINE [Concomitant]
     Active Substance: HYDROXYZINE HYDROCHLORIDE
     Route: 065
  33. VICTOZA [Concomitant]
     Active Substance: LIRAGLUTIDE
     Route: 065

REACTIONS (5)
  - Fluid intake reduced [Unknown]
  - Irritability [Unknown]
  - Decreased appetite [Unknown]
  - Agitation [Unknown]
  - Nausea [Unknown]
